FAERS Safety Report 25207961 (Version 1)
Quarter: 2025Q2

REPORT INFORMATION
  Report Type: Spontaneous
  Country: US (occurrence: US)
  Receive Date: 20250417
  Receipt Date: 20250417
  Transmission Date: 20250716
  Serious: No
  Sender: ALEXION PHARMACEUTICALS
  Company Number: US-AstraZeneca-CH-00851025A

PATIENT

DRUGS (1)
  1. FARXIGA [Suspect]
     Active Substance: DAPAGLIFLOZIN PROPANEDIOL
     Route: 065

REACTIONS (12)
  - Urinary tract infection [Unknown]
  - Accident [Unknown]
  - Dysuria [Unknown]
  - Weight increased [Unknown]
  - Fluid retention [Unknown]
  - Dyspnoea [Unknown]
  - Gait disturbance [Unknown]
  - Condition aggravated [Unknown]
  - Injury [Unknown]
  - Urinary tract infection [Unknown]
  - Inability to afford medication [Unknown]
  - Wound haemorrhage [Unknown]
